FAERS Safety Report 20713418 (Version 1)
Quarter: 2022Q2

REPORT INFORMATION
  Report Type: Spontaneous
  Country: US (occurrence: None)
  Receive Date: 20220414
  Receipt Date: 20220414
  Transmission Date: 20220720
  Serious: Yes (Hospitalization)
  Sender: FDA-Public Use
  Company Number: None

PATIENT
  Sex: Male

DRUGS (8)
  1. ADYNOVATE [Suspect]
     Active Substance: ANTIHEMOPHILIC FACTOR, HUMAN RECOMBINANT
     Indication: Blood disorder
     Dosage: FREQUENCY : TWICE A WEEK;?
     Route: 042
     Dates: start: 20220118
  2. HEPARIN LOCK FLUSH [Concomitant]
     Active Substance: HEPARIN SODIUM
  3. LIDOCAINE [Concomitant]
     Active Substance: LIDOCAINE
  4. LIDOCAINE\PRILOCAINE [Concomitant]
     Active Substance: LIDOCAINE\PRILOCAINE
  5. MONOJECT PREFILL ADVANCED [Concomitant]
  6. MULTIVITTAMIN CHW CHILD [Concomitant]
  7. PAIN RELIEVING MAXIMUM ST [Concomitant]
  8. SODIUM CHLORIDE [Concomitant]
     Active Substance: SODIUM CHLORIDE

REACTIONS (1)
  - Pyrexia [None]
